FAERS Safety Report 18250360 (Version 2)
Quarter: 2020Q3

REPORT INFORMATION
  Report Type: Spontaneous
  Country: US (occurrence: US)
  Receive Date: 20200909
  Receipt Date: 20200917
  Transmission Date: 20201103
  Serious: No
  Sender: FDA-Public Use
  Company Number: US-FRESENIUS KABI-FK202009117

PATIENT
  Age: 11 Year
  Sex: Male
  Weight: 49.3 kg

DRUGS (9)
  1. SIROLIMUS. [Suspect]
     Active Substance: SIROLIMUS
     Indication: PRODUCT USED FOR UNKNOWN INDICATION
     Dosage: UNKNOWN
     Route: 065
  2. SMOFLIPID [Suspect]
     Active Substance: FISH OIL\MEDIUM-CHAIN TRIGLYCERIDES\OLIVE OIL\SOYBEAN OIL
     Indication: PARENTERAL NUTRITION
     Dosage: DAY 6; UNKNOWN DOSE
     Route: 042
  3. CICLOSPORIN [Concomitant]
     Active Substance: CYCLOSPORINE
     Indication: PRODUCT USED FOR UNKNOWN INDICATION
     Dosage: UNKNOWN
     Route: 065
  4. INTRALIPID [Suspect]
     Active Substance: EGG PHOSPHOLIPIDS\GLYCERIN\SOYBEAN OIL
     Dosage: RESTARTED AT 0.5G/KG, TIW (0.1 G/KG/DAY LA AVERAGE)
     Route: 042
     Dates: start: 20200311
  5. RUXOLITINIB [Suspect]
     Active Substance: RUXOLITINIB
     Indication: GRAFT VERSUS HOST DISEASE
     Dosage: UNKNOWN
     Route: 065
  6. PREDNISOLONE. [Concomitant]
     Active Substance: PREDNISOLONE
     Indication: PRODUCT USED FOR UNKNOWN INDICATION
     Dosage: UNKNOWN
     Route: 065
  7. SMOFLIPID [Suspect]
     Active Substance: FISH OIL\MEDIUM-CHAIN TRIGLYCERIDES\OLIVE OIL\SOYBEAN OIL
     Dosage: DAY 7: DOSE ADVANCED TO 1.2 G/KG/DAY: CYCLED OVER 12 H (0.1G/KG/H)
     Route: 042
     Dates: start: 20200212, end: 20200219
  8. INTRALIPID [Suspect]
     Active Substance: EGG PHOSPHOLIPIDS\GLYCERIN\SOYBEAN OIL
     Indication: PARENTERAL NUTRITION
     Dosage: DAY 1: TOTAL KCAL: 1124 KCAL, GIR: 1.9 MG/KG/MIN, PROTEIN: 1G/KG/DAY, FAT: 1G/KG/DAY (0.04 G/KG/H);
     Route: 042
     Dates: start: 20200207
  9. INTRALIPID [Suspect]
     Active Substance: EGG PHOSPHOLIPIDS\GLYCERIN\SOYBEAN OIL
     Route: 042
     Dates: start: 20200403

REACTIONS (3)
  - Intentional product use issue [Unknown]
  - Hypertriglyceridaemia [Recovering/Resolving]
  - Fatty acid deficiency [Recovering/Resolving]
